FAERS Safety Report 8161643-5 (Version None)
Quarter: 2012Q1

REPORT INFORMATION
  Report Type: 
  Country: None (occurrence: None)
  Receive Date: 20120224
  Receipt Date: 20120221
  Transmission Date: 20120608
  Serious: Yes (Other)
  Sender: FDA-Public Use
  Company Number: US-PFIZER INC-2012046206

PATIENT
  Sex: Female
  Weight: 64.399 kg

DRUGS (3)
  1. PREMARIN [Suspect]
     Dosage: 0.5 MG, 1X/DAY
     Route: 067
  2. PREMARIN [Suspect]
     Indication: VULVOVAGINAL DRYNESS
     Dosage: UNK, 1X/DAY
     Route: 067
  3. PREMARIN [Suspect]
     Dosage: UNK, 1X/DAY
     Route: 067

REACTIONS (5)
  - BLOOD GLUCOSE INCREASED [None]
  - BLOOD CHOLESTEROL INCREASED [None]
  - BLOOD TRIGLYCERIDES INCREASED [None]
  - EXPIRED DRUG ADMINISTERED [None]
  - ULCER [None]
